FAERS Safety Report 15410548 (Version 8)
Quarter: 2019Q1

REPORT INFORMATION
  Report Type: Spontaneous
  Country: CA (occurrence: CA)
  Receive Date: 20180921
  Receipt Date: 20190309
  Transmission Date: 20190417
  Serious: Yes (Hospitalization, Other)
  Sender: FDA-Public Use
  Company Number: CA-CELLTRION INC.-2018CA022434

PATIENT

DRUGS (13)
  1. AZATHIOPRINE. [Concomitant]
     Active Substance: AZATHIOPRINE
     Dosage: UNK
  2. INFLECTRA [Suspect]
     Active Substance: INFLIXIMAB-DYYB
     Indication: CROHN^S DISEASE
     Dosage: 5 MG/KG WEEK 0, 1, 4 THEN Q 8 WEEKS
     Route: 042
     Dates: start: 20180828
  3. INFLECTRA [Suspect]
     Active Substance: INFLIXIMAB-DYYB
     Dosage: 5 MG/KG WEEK 0, 1, 4 THEN Q4 WEEKS
     Route: 042
     Dates: start: 20180906
  4. INFLECTRA [Suspect]
     Active Substance: INFLIXIMAB-DYYB
     Dosage: 10 MG/KG, 0-1-4 WEEKS
     Route: 042
     Dates: start: 20181226
  5. IRON [Concomitant]
     Active Substance: IRON
     Dosage: UNK
  6. MAGNESIUM [Concomitant]
     Active Substance: MAGNESIUM
     Dosage: UNK
  7. VALPROIC ACID. [Concomitant]
     Active Substance: VALPROIC ACID
     Dosage: UNK
  8. INFLECTRA [Suspect]
     Active Substance: INFLIXIMAB-DYYB
     Dosage: 5 MG/KG WEEK 0, 1, 4 THEN Q4 WEEKS
     Route: 042
     Dates: start: 20180925
  9. INFLECTRA [Suspect]
     Active Substance: INFLIXIMAB-DYYB
     Dosage: 600 MG (WEIGHT: 69.5 KG, FOR ONE INFUSION), UNK
     Route: 042
     Dates: start: 20181023, end: 20181023
  10. PREDNISONE. [Concomitant]
     Active Substance: PREDNISONE
     Dosage: UNK
  11. INFLECTRA [Suspect]
     Active Substance: INFLIXIMAB-DYYB
     Dosage: 10 MG/KG, 0-1-4 WEEKS
     Route: 042
     Dates: start: 20181106
  12. PANTOLOC CONTROL [Concomitant]
     Active Substance: PANTOPRAZOLE SODIUM
     Dosage: UNK
  13. EFFEXOR [Concomitant]
     Active Substance: VENLAFAXINE HYDROCHLORIDE
     Dosage: UNK

REACTIONS (21)
  - Septic shock [Recovered/Resolved]
  - Hypotension [Unknown]
  - Drug ineffective [Not Recovered/Not Resolved]
  - Hyponatraemia [Unknown]
  - Hypersensitivity [Unknown]
  - Product use issue [Unknown]
  - Condition aggravated [Unknown]
  - Blood pressure fluctuation [Unknown]
  - Product use issue [Unknown]
  - Systemic candida [Recovered/Resolved]
  - Poor venous access [Unknown]
  - Dyspnoea [Recovered/Resolved]
  - Heart rate irregular [Recovered/Resolved]
  - Body temperature fluctuation [Unknown]
  - Serum sickness-like reaction [Recovered/Resolved]
  - Salivary hypersecretion [Recovered/Resolved]
  - Intestinal obstruction [Unknown]
  - Panic disorder [Recovered/Resolved]
  - Nausea [Recovered/Resolved]
  - Malaise [Recovered/Resolved]
  - Tension [Recovered/Resolved]

NARRATIVE: CASE EVENT DATE: 20180828
